FAERS Safety Report 25653476 (Version 1)
Quarter: 2025Q3

REPORT INFORMATION
  Report Type: Spontaneous
  Country: US (occurrence: US)
  Receive Date: 20250807
  Receipt Date: 20250807
  Transmission Date: 20251020
  Serious: Yes (Other)
  Sender: Unknown Manufacturer
  Company Number: US-MELINTA THERAPEUTICS, LLC-US-MLNT-25-00199

PATIENT

DRUGS (2)
  1. TOPROL XL [Suspect]
     Active Substance: METOPROLOL SUCCINATE
     Indication: Product used for unknown indication
  2. FARXIGA [Suspect]
     Active Substance: DAPAGLIFLOZIN PROPANEDIOL
     Indication: Product used for unknown indication

REACTIONS (14)
  - Chronic lymphocytic leukaemia [Unknown]
  - Blindness unilateral [Unknown]
  - Transplant failure [Unknown]
  - Type 2 diabetes mellitus [Unknown]
  - Atrial fibrillation [Unknown]
  - Cardiac failure congestive [Unknown]
  - Nephrotomy [Unknown]
  - Hypertension [Unknown]
  - Cardiac pacemaker insertion [Unknown]
  - Hyperlipidaemia [Unknown]
  - Obesity [Unknown]
  - Benign prostatic hyperplasia [Unknown]
  - Bladder neoplasm [Unknown]
  - Oedema peripheral [Unknown]
